FAERS Safety Report 14620976 (Version 1)
Quarter: 2018Q1

REPORT INFORMATION
  Report Type: Report from Study
  Country: None (occurrence: US)
  Receive Date: 20180309
  Receipt Date: 20180309
  Transmission Date: 20180509
  Serious: Yes (Other)
  Sender: FDA-Public Use
  Company Number: US-ABBVIE-18P-163-2275364-00

PATIENT
  Sex: Female

DRUGS (7)
  1. TRAMADOL. [Concomitant]
     Active Substance: TRAMADOL
     Indication: NECK PAIN
  2. SYNTHROID [Suspect]
     Active Substance: LEVOTHYROXINE SODIUM
     Indication: HYPOTHYROIDISM
     Route: 048
     Dates: start: 201711
  3. TIZADINE [Concomitant]
     Active Substance: TIZANIDINE HYDROCHLORIDE
     Indication: MUSCLE SPASMS
  4. VITAMIN D3 [Concomitant]
     Active Substance: CHOLECALCIFEROL
     Indication: PRODUCT USED FOR UNKNOWN INDICATION
  5. SYNTHROID [Suspect]
     Active Substance: LEVOTHYROXINE SODIUM
     Route: 048
  6. AMLODIPINE [Concomitant]
     Active Substance: AMLODIPINE BESYLATE
     Indication: HYPERTENSION
  7. DIAZEPAM. [Concomitant]
     Active Substance: DIAZEPAM
     Indication: NEURALGIA

REACTIONS (3)
  - Blood thyroid stimulating hormone decreased [Not Recovered/Not Resolved]
  - Delayed recovery from anaesthesia [Recovering/Resolving]
  - Intervertebral disc disorder [Recovering/Resolving]

NARRATIVE: CASE EVENT DATE: 2017
